FAERS Safety Report 12637004 (Version 1)
Quarter: 2016Q3

REPORT INFORMATION
  Report Type: Report from Study
  Country: JP (occurrence: JP)
  Receive Date: 20160809
  Receipt Date: 20160809
  Transmission Date: 20161109
  Serious: Yes (Hospitalization, Other)
  Sender: FDA-Public Use
  Company Number: JP-ASTELLAS-2009JP005038

PATIENT
  Age: 38 Year
  Sex: Female
  Weight: 52 kg

DRUGS (73)
  1. TACROLIMUS. [Interacting]
     Active Substance: TACROLIMUS
     Route: 048
     Dates: start: 20111026, end: 20120222
  2. RINDERON V [Interacting]
     Active Substance: BETAMETHASONE VALERATE
     Dosage: 0.93 MG, ONCE DAILY
     Route: 048
     Dates: start: 20090624, end: 20091006
  3. RINDERON V [Interacting]
     Active Substance: BETAMETHASONE VALERATE
     Route: 048
     Dates: start: 20140514, end: 20140924
  4. PREDNISOLONE. [Concomitant]
     Active Substance: PREDNISOLONE
     Route: 048
     Dates: start: 20110323, end: 20110426
  5. PREDNISOLONE. [Concomitant]
     Active Substance: PREDNISOLONE
     Route: 048
     Dates: start: 20110427, end: 20110531
  6. PREDNISOLONE. [Concomitant]
     Active Substance: PREDNISOLONE
     Route: 048
     Dates: start: 20120120, end: 20120313
  7. PREDNISOLONE. [Concomitant]
     Active Substance: PREDNISOLONE
     Route: 048
     Dates: start: 20120419, end: 20120424
  8. PREDNISOLONE. [Concomitant]
     Active Substance: PREDNISOLONE
     Route: 048
     Dates: start: 20120425, end: 20120523
  9. PREDNISOLONE. [Concomitant]
     Active Substance: PREDNISOLONE
     Route: 048
     Dates: start: 20120717, end: 20120821
  10. PREDNISOLONE. [Concomitant]
     Active Substance: PREDNISOLONE
     Route: 048
     Dates: start: 20140201, end: 20140219
  11. COMELIAN [Concomitant]
     Active Substance: DILAZEP
     Route: 048
     Dates: start: 20080417, end: 20100907
  12. IMURAN [Concomitant]
     Active Substance: AZATHIOPRINE
     Indication: LUPUS NEPHRITIS
     Route: 048
     Dates: start: 20120222, end: 20120314
  13. TAKEPRON [Concomitant]
     Active Substance: LANSOPRAZOLE
     Indication: GASTROOESOPHAGEAL REFLUX DISEASE
     Route: 048
     Dates: start: 20120120, end: 20120417
  14. GASMOTIN [Concomitant]
     Active Substance: MOSAPRIDE CITRATE
     Indication: PROPHYLAXIS
  15. TACROLIMUS. [Suspect]
     Active Substance: TACROLIMUS
     Indication: LUPUS NEPHRITIS
     Route: 048
     Dates: start: 20071031, end: 20111025
  16. RINDERON V [Interacting]
     Active Substance: BETAMETHASONE VALERATE
     Route: 048
     Dates: start: 20080904, end: 20081001
  17. RINDERON V [Interacting]
     Active Substance: BETAMETHASONE VALERATE
     Route: 048
     Dates: start: 20090513, end: 20090623
  18. RINDERON V [Interacting]
     Active Substance: BETAMETHASONE VALERATE
     Dosage: 0.71 MG, ONCE DAILY
     Route: 048
     Dates: start: 20100310, end: 20100601
  19. VOLTAREN [Suspect]
     Active Substance: DICLOFENAC SODIUM
     Indication: PROPHYLAXIS
  20. PREDNISOLONE. [Concomitant]
     Active Substance: PREDNISOLONE
     Route: 048
     Dates: start: 20101027, end: 20101109
  21. PREDNISOLONE. [Concomitant]
     Active Substance: PREDNISOLONE
     Route: 048
     Dates: start: 20110722, end: 20120119
  22. ACINON [Concomitant]
     Active Substance: NIZATIDINE
     Indication: PRODUCT USED FOR UNKNOWN INDICATION
     Route: 048
     Dates: end: 20080520
  23. COMELIAN [Concomitant]
     Active Substance: DILAZEP
     Indication: LUPUS NEPHRITIS
     Route: 048
     Dates: end: 20080416
  24. ISODINE [Concomitant]
     Active Substance: POVIDONE-IODINE
     Indication: PRODUCT USED FOR UNKNOWN INDICATION
     Route: 061
     Dates: end: 20080123
  25. ISODINE [Concomitant]
     Active Substance: POVIDONE-IODINE
     Dosage: UNK UNK, UNKNOWN FREQ.
     Route: 061
     Dates: start: 20080220, end: 20101026
  26. EDIROL [Concomitant]
     Active Substance: ELDECALCITOL
     Indication: PRODUCT USED FOR UNKNOWN INDICATION
     Dosage: 0.75 ?G, ONCE DAILY
     Route: 048
     Dates: start: 20120405
  27. PARIET [Concomitant]
     Active Substance: RABEPRAZOLE SODIUM
     Indication: GASTROOESOPHAGEAL REFLUX DISEASE
     Route: 048
     Dates: start: 20120418, end: 20120717
  28. RINDERON V [Interacting]
     Active Substance: BETAMETHASONE VALERATE
     Indication: LUPUS NEPHRITIS
     Route: 048
     Dates: start: 20080521, end: 20080604
  29. RINDERON V [Interacting]
     Active Substance: BETAMETHASONE VALERATE
     Route: 048
     Dates: start: 20081002, end: 20081231
  30. VOLTAREN [Suspect]
     Active Substance: DICLOFENAC SODIUM
     Indication: DYSMENORRHOEA
     Route: 048
     Dates: start: 20111207, end: 20121219
  31. PREDNISOLONE. [Concomitant]
     Active Substance: PREDNISOLONE
     Indication: LUPUS NEPHRITIS
     Route: 048
     Dates: end: 20071127
  32. PREDNISOLONE. [Concomitant]
     Active Substance: PREDNISOLONE
     Route: 048
     Dates: start: 20080123, end: 20080324
  33. PREDNISOLONE. [Concomitant]
     Active Substance: PREDNISOLONE
     Route: 048
     Dates: start: 20100602, end: 20100910
  34. PREDNISOLONE. [Concomitant]
     Active Substance: PREDNISOLONE
     Route: 048
     Dates: start: 20100911, end: 20100914
  35. PREDNISOLONE. [Concomitant]
     Active Substance: PREDNISOLONE
     Route: 048
     Dates: start: 20120919, end: 20121017
  36. PREDNISOLONE. [Concomitant]
     Active Substance: PREDNISOLONE
     Route: 048
     Dates: start: 20131003, end: 20131010
  37. ONEALFA [Concomitant]
     Active Substance: ALFACALCIDOL
     Indication: PRODUCT USED FOR UNKNOWN INDICATION
     Route: 048
     Dates: end: 20120404
  38. FERROMIA                           /00023520/ [Concomitant]
     Indication: MENORRHAGIA
     Route: 048
     Dates: start: 20110223
  39. NEXIUM [Concomitant]
     Active Substance: ESOMEPRAZOLE MAGNESIUM
     Indication: GASTROOESOPHAGEAL REFLUX DISEASE
     Route: 048
     Dates: start: 20120718
  40. PREDNISOLONE. [Concomitant]
     Active Substance: PREDNISOLONE
     Route: 048
     Dates: start: 20120822, end: 20120918
  41. ZANTAC [Concomitant]
     Active Substance: RANITIDINE HYDROCHLORIDE
     Route: 048
     Dates: end: 20100727
  42. FERROMIA                           /00023520/ [Concomitant]
     Indication: PROPHYLAXIS
  43. TACROLIMUS. [Interacting]
     Active Substance: TACROLIMUS
     Route: 048
     Dates: start: 20120315, end: 20130521
  44. TACROLIMUS. [Interacting]
     Active Substance: TACROLIMUS
     Route: 048
     Dates: start: 20130522
  45. RINDERON V [Interacting]
     Active Substance: BETAMETHASONE VALERATE
     Route: 048
     Dates: start: 20080605, end: 20080702
  46. RINDERON V [Interacting]
     Active Substance: BETAMETHASONE VALERATE
     Route: 048
     Dates: start: 20090101, end: 20090512
  47. PREDNISOLONE. [Concomitant]
     Active Substance: PREDNISOLONE
     Route: 048
     Dates: start: 20120314, end: 20120320
  48. PREDNISOLONE. [Concomitant]
     Active Substance: PREDNISOLONE
     Route: 048
     Dates: start: 20120321, end: 20120404
  49. NEXIUM [Concomitant]
     Active Substance: ESOMEPRAZOLE MAGNESIUM
     Indication: PROPHYLAXIS
  50. RINDERON V [Interacting]
     Active Substance: BETAMETHASONE VALERATE
     Route: 048
     Dates: start: 20080703, end: 20080903
  51. PREDNISOLONE. [Concomitant]
     Active Substance: PREDNISOLONE
     Route: 048
     Dates: start: 20100929, end: 20101026
  52. PREDNISOLONE. [Concomitant]
     Active Substance: PREDNISOLONE
     Route: 048
     Dates: start: 20101110, end: 20101123
  53. PREDNISOLONE. [Concomitant]
     Active Substance: PREDNISOLONE
     Route: 048
     Dates: start: 20101124, end: 20110322
  54. PREDNISOLONE. [Concomitant]
     Active Substance: PREDNISOLONE
     Route: 048
     Dates: start: 20110601, end: 20110721
  55. PREDNISOLONE. [Concomitant]
     Active Substance: PREDNISOLONE
     Route: 048
     Dates: start: 20120606, end: 20120716
  56. PREDNISOLONE. [Concomitant]
     Active Substance: PREDNISOLONE
     Route: 048
     Dates: start: 20131011, end: 20131220
  57. PREDNISOLONE. [Concomitant]
     Active Substance: PREDNISOLONE
     Route: 048
     Dates: start: 20131221, end: 20140131
  58. PREDNISOLONE. [Concomitant]
     Active Substance: PREDNISOLONE
     Route: 048
     Dates: start: 20140220, end: 20140513
  59. BENET [Concomitant]
     Active Substance: RISEDRONATE SODIUM
     Indication: PROPHYLAXIS
     Route: 048
     Dates: start: 20120321
  60. RINDERON V [Interacting]
     Active Substance: BETAMETHASONE VALERATE
     Dosage: 0.86 MG, ONCE DAILY
     Route: 048
     Dates: start: 20091007, end: 20100309
  61. PREDNISOLONE. [Concomitant]
     Active Substance: PREDNISOLONE
     Route: 048
     Dates: start: 20071226, end: 20080122
  62. PREDNISOLONE. [Concomitant]
     Active Substance: PREDNISOLONE
     Route: 048
     Dates: start: 20080325, end: 20080520
  63. PREDNISOLONE. [Concomitant]
     Active Substance: PREDNISOLONE
     Route: 048
     Dates: start: 20120405, end: 20120418
  64. ZANTAC [Concomitant]
     Active Substance: RANITIDINE HYDROCHLORIDE
     Indication: PROPHYLAXIS
     Route: 048
     Dates: start: 20080521
  65. GASMOTIN [Concomitant]
     Active Substance: MOSAPRIDE CITRATE
     Indication: ABDOMINAL PAIN UPPER
     Route: 048
     Dates: start: 20120425, end: 20130515
  66. RINDERON V [Interacting]
     Active Substance: BETAMETHASONE VALERATE
     Route: 048
     Dates: start: 20140925
  67. PREDNISOLONE. [Concomitant]
     Active Substance: PREDNISOLONE
     Route: 048
     Dates: start: 20071128, end: 20071225
  68. PREDNISOLONE. [Concomitant]
     Active Substance: PREDNISOLONE
     Route: 048
     Dates: start: 20100915, end: 20100928
  69. PREDNISOLONE. [Concomitant]
     Active Substance: PREDNISOLONE
     Route: 048
     Dates: start: 20120524, end: 20120605
  70. PREDNISOLONE. [Concomitant]
     Active Substance: PREDNISOLONE
     Route: 048
     Dates: start: 20121018, end: 20131002
  71. ULGUT [Concomitant]
     Indication: PRODUCT USED FOR UNKNOWN INDICATION
     Route: 048
     Dates: end: 20130520
  72. SLOW-FE [Concomitant]
     Active Substance: FERROUS SULFATE
     Indication: PRODUCT USED FOR UNKNOWN INDICATION
     Route: 048
     Dates: end: 20100914
  73. TAKEPRON [Concomitant]
     Active Substance: LANSOPRAZOLE
     Indication: PROPHYLAXIS

REACTIONS (14)
  - Gastrooesophageal reflux disease [Recovering/Resolving]
  - Cataract [Recovered/Resolved]
  - Hepatic artery aneurysm [Recovered/Resolved]
  - Nephritis [Recovered/Resolved]
  - Menorrhagia [Recovered/Resolved]
  - Dysmenorrhoea [Recovering/Resolving]
  - DNA antibody positive [Recovering/Resolving]
  - Malaise [Recovered/Resolved]
  - Anaemia [Recovered/Resolved]
  - Abdominal pain upper [Recovering/Resolving]
  - Back pain [Recovering/Resolving]
  - Drug interaction [Unknown]
  - Diarrhoea [Recovered/Resolved]
  - Thirst [Recovering/Resolving]

NARRATIVE: CASE EVENT DATE: 20080521
